FAERS Safety Report 8106384-5 (Version None)
Quarter: 2012Q1

REPORT INFORMATION
  Report Type: 
  Country: None (occurrence: None)
  Receive Date: 20120202
  Receipt Date: 20120127
  Transmission Date: 20120608
  Serious: Yes (Death, Hospitalization)
  Sender: FDA-Public Use
  Company Number: US-CELGENEUS-163-21880-11111058

PATIENT
  Sex: Female

DRUGS (9)
  1. GLYBURIDE [Concomitant]
     Route: 065
  2. PRILOSEC [Concomitant]
     Route: 065
  3. FUROSEMIDE [Concomitant]
     Route: 065
  4. LEVOXYL [Concomitant]
     Route: 065
  5. IRON [Concomitant]
     Route: 065
  6. DILTIAZEM HCL CR [Concomitant]
     Route: 065
  7. REVLIMID [Suspect]
     Dosage: 10 MILLIGRAM
     Route: 048
     Dates: start: 20111019
  8. CRESTOR [Concomitant]
     Route: 065
  9. DIGOXIN [Concomitant]
     Route: 065

REACTIONS (4)
  - DEATH [None]
  - SEPSIS [None]
  - WHITE BLOOD CELL COUNT DECREASED [None]
  - RENAL FAILURE [None]
